FAERS Safety Report 9169509 (Version 2)
Quarter: 2013Q4

REPORT INFORMATION
  Report Type: Spontaneous
  Country: US (occurrence: US)
  Receive Date: 20130318
  Receipt Date: 20131115
  Transmission Date: 20140711
  Serious: Yes (Hospitalization)
  Sender: FDA-Public Use
  Company Number: US-B.I. PHARMACEUTICALS,INC./RIDGEFIELD-2013-BI-06724BP

PATIENT
  Age: 70 Year
  Sex: Female
  Weight: 83.91 kg

DRUGS (6)
  1. PRADAXA [Suspect]
     Indication: ANTICOAGULANT THERAPY
     Dates: start: 20110716, end: 20120312
  2. HYDROCODONE [Concomitant]
  3. AMIODARONE [Concomitant]
  4. OMEPRAZOLE [Concomitant]
  5. CLONIDINE [Concomitant]
  6. FUROSEMIDE [Concomitant]

REACTIONS (4)
  - Upper gastrointestinal haemorrhage [Unknown]
  - Ulcer haemorrhage [Unknown]
  - Haemorrhagic anaemia [Unknown]
  - Occult blood positive [Unknown]
